FAERS Safety Report 13660602 (Version 1)
Quarter: 2017Q2

REPORT INFORMATION
  Report Type: Spontaneous
  Country: US (occurrence: US)
  Receive Date: 20170616
  Receipt Date: 20170616
  Transmission Date: 20170830
  Serious: Yes (Other)
  Sender: FDA-Public Use
  Company Number: US-BAYER-2017-108578

PATIENT
  Age: 19 Year
  Sex: Female
  Weight: 52.15 kg

DRUGS (2)
  1. ALEVE [Suspect]
     Active Substance: NAPROXEN SODIUM
     Indication: PAIN
     Dosage: 1 DF, UNK
     Route: 048
     Dates: start: 201706
  2. ALEVE [Suspect]
     Active Substance: NAPROXEN SODIUM
     Indication: MYALGIA

REACTIONS (2)
  - Anaphylactic shock [Unknown]
  - Hypersensitivity [Unknown]

NARRATIVE: CASE EVENT DATE: 20170606
